FAERS Safety Report 8608232-3 (Version None)
Quarter: 2012Q3

REPORT INFORMATION
  Report Type: 
  Country: None (occurrence: None)
  Receive Date: 20120808
  Receipt Date: 20120725
  Transmission Date: 20120928
  Serious: Yes (Hospitalization)
  Sender: FDA-Public Use
  Company Number: DSA_58814_2012

PATIENT
  Age: 44 Year
  Sex: Male

DRUGS (3)
  1. NICORETTE [Suspect]
     Indication: PRODUCT USED FOR UNKNOWN INDICATION
     Dosage: (88 MG, 20-22 4MG MINI LOZENGES DAILY BUCCAL)
     Route: 002
  2. WELLBUTRIN XL [Suspect]
     Indication: PRODUCT USED FOR UNKNOWN INDICATION
     Dosage: (300 MG BID ORAL)
     Route: 048
  3. NICORETTE [Suspect]
     Indication: PRODUCT USED FOR UNKNOWN INDICATION
     Dosage: (22 PIECES OF 4MG DAILY BUCCAL)
     Route: 002

REACTIONS (10)
  - NICOTINE DEPENDENCE [None]
  - INTENTIONAL DRUG MISUSE [None]
  - CONVULSION [None]
  - SPEECH DISORDER [None]
  - HEART RATE INCREASED [None]
  - INCORRECT DRUG ADMINISTRATION DURATION [None]
  - CONFUSIONAL STATE [None]
  - VISION BLURRED [None]
  - DRUG INEFFECTIVE [None]
  - PRODUCT QUALITY ISSUE [None]
